APPROVED DRUG PRODUCT: MEPIVACAINE HYDROCHLORIDE
Active Ingredient: MEPIVACAINE HYDROCHLORIDE
Strength: 1%
Dosage Form/Route: INJECTABLE;INJECTION
Application: A087509 | Product #001
Applicant: INTERNATIONAL MEDICATION SYSTEMS LTD
Approved: Oct 5, 1982 | RLD: No | RS: No | Type: DISCN